FAERS Safety Report 8120761-8 (Version None)
Quarter: 2012Q1

REPORT INFORMATION
  Report Type: 
  Country: None (occurrence: None)
  Receive Date: 20120207
  Receipt Date: 20120131
  Transmission Date: 20120608
  Serious: Yes (Other)
  Sender: FDA-Public Use
  Company Number: US-ASTRAZENECA-2011SE69545

PATIENT
  Age: 63 Year
  Sex: Female
  Weight: 94.3 kg

DRUGS (5)
  1. CRESTOR [Suspect]
     Indication: HYPERLIPIDAEMIA
     Route: 048
     Dates: start: 20111001, end: 20111004
  2. LASIX [Concomitant]
     Indication: CARDIAC FAILURE CONGESTIVE
  3. CELEXA [Concomitant]
     Indication: DEPRESSION
  4. VERAPAMIL [Concomitant]
     Indication: CARDIAC FAILURE CONGESTIVE
  5. VERAPAMIL [Concomitant]
     Indication: CARDIOMYOPATHY

REACTIONS (4)
  - ABDOMINAL PAIN UPPER [None]
  - GASTRIC HAEMORRHAGE [None]
  - RECTAL HAEMORRHAGE [None]
  - ABDOMINAL PAIN [None]
